FAERS Safety Report 15085119 (Version 2)
Quarter: 2018Q2

REPORT INFORMATION
  Report Type: Spontaneous
  Country: JP (occurrence: JP)
  Receive Date: 20180628
  Receipt Date: 20180628
  Transmission Date: 20180711
  Serious: Yes (Hospitalization)
  Sender: FDA-Public Use
  Company Number: PHHY2018JP023183

PATIENT
  Age: 59 Year
  Sex: Female

DRUGS (1)
  1. PREDNISOLONE. [Suspect]
     Active Substance: PREDNISOLONE
     Indication: HYPEREOSINOPHILIC SYNDROME
     Dosage: 10 MG, QD
     Route: 065

REACTIONS (14)
  - Dysphagia [Recovering/Resolving]
  - Muscular weakness [Recovering/Resolving]
  - Cerebral infarction [Recovering/Resolving]
  - Eyelid disorder [Recovering/Resolving]
  - Speech disorder [Recovering/Resolving]
  - Dyspraxia [Recovering/Resolving]
  - Progressive multifocal leukoencephalopathy [Recovering/Resolving]
  - Drooling [Recovering/Resolving]
  - Hyperintensity in brain deep nuclei [Recovering/Resolving]
  - Product use in unapproved indication [Unknown]
  - Dysarthria [Not Recovered/Not Resolved]
  - Protrusion tongue [Recovering/Resolving]
  - Ataxia [Recovering/Resolving]
  - Hemiparesis [Not Recovered/Not Resolved]

NARRATIVE: CASE EVENT DATE: 201602
